FAERS Safety Report 5750561-5 (Version None)
Quarter: 2008Q2

REPORT INFORMATION
  Report Type: 
  Country: None (occurrence: None)
  Receive Date: 20080523
  Receipt Date: 20080523
  Transmission Date: 20081010
  Serious: Yes (Hospitalization)
  Sender: FDA-Public Use
  Company Number: None

PATIENT
  Age: 44 Year
  Sex: Male
  Weight: 49.5 kg

DRUGS (4)
  1. CAPECITABINE [Suspect]
     Indication: PANCREATIC CARCINOMA
     Dosage: 2000 MG CYC PO
     Route: 048
     Dates: start: 20070914, end: 20080511
  2. OMEPRAZOLE [Concomitant]
  3. METHOCLOPRAMIDE [Concomitant]
  4. ERYTHROPOETIN [Concomitant]

REACTIONS (2)
  - CHOLANGITIS [None]
  - DEHYDRATION [None]
